FAERS Safety Report 12331241 (Version 1)
Quarter: 2016Q2

REPORT INFORMATION
  Report Type: Spontaneous
  Country: GB (occurrence: GB)
  Receive Date: 20160504
  Receipt Date: 20160504
  Transmission Date: 20160815
  Serious: Yes (Other)
  Sender: FDA-Public Use
  Company Number: GB-ACTAVIS-2016-08700

PATIENT
  Age: 67 Year
  Sex: Female

DRUGS (2)
  1. DONEPEZIL (UNKNOWN) [Suspect]
     Active Substance: DONEPEZIL
     Indication: DEMENTIA WITH LEWY BODIES
     Dosage: 10 MG, TOTAL
     Route: 048
     Dates: end: 20160311
  2. DONEPEZIL (UNKNOWN) [Suspect]
     Active Substance: DONEPEZIL
     Dosage: 5 MG, UNK
     Route: 048
     Dates: start: 20160225

REACTIONS (4)
  - Aggression [Unknown]
  - Thirst [Unknown]
  - Migraine [Unknown]
  - Vomiting [Unknown]
